FAERS Safety Report 20049544 (Version 2)
Quarter: 2021Q4

REPORT INFORMATION
  Report Type: Report from Study
  Country: US (occurrence: US)
  Receive Date: 20211109
  Receipt Date: 20211122
  Transmission Date: 20220303
  Serious: Yes (Hospitalization)
  Sender: FDA-Public Use
  Company Number: US-SHIONOGI, INC-2021000447

PATIENT
  Age: 25 Year
  Sex: Male
  Weight: 54.431 kg

DRUGS (1)
  1. FETROJA [Suspect]
     Active Substance: CEFIDEROCOL SULFATE TOSYLATE
     Indication: Urinary tract infection
     Dosage: UNKNOWN
     Route: 042
     Dates: start: 20210218, end: 20210225

REACTIONS (2)
  - Urinary tract infection [Not Recovered/Not Resolved]
  - Treatment failure [Unknown]
